FAERS Safety Report 5438977-8 (Version None)
Quarter: 2007Q3

REPORT INFORMATION
  Report Type: 
  Country: None (occurrence: None)
  Receive Date: 20070831
  Receipt Date: 20070823
  Transmission Date: 20080115
  Serious: No
  Sender: FDA-Public Use
  Company Number: A0674366A

PATIENT

DRUGS (2)
  1. ALLI [Suspect]
  2. AVIANE-21 [Concomitant]

REACTIONS (4)
  - ABDOMINAL PAIN UPPER [None]
  - GASTROINTESTINAL SOUNDS ABNORMAL [None]
  - MENORRHAGIA [None]
  - MUSCLE SPASMS [None]
